FAERS Safety Report 23210176 (Version 7)
Quarter: 2024Q3

REPORT INFORMATION
  Report Type: Report from Study
  Country: US (occurrence: US)
  Receive Date: 20231121
  Receipt Date: 20240927
  Transmission Date: 20241016
  Serious: No
  Sender: ACADIA PHARMACEUTICALS
  Company Number: US-ACADIA PHARMACEUTICALS INC.-ACA-2023-TRF-004936

PATIENT
  Sex: Female

DRUGS (6)
  1. DAYBUE [Suspect]
     Active Substance: TROFINETIDE
     Indication: Rett syndrome
     Dosage: 30 MILLILITER, BID
     Route: 048
  2. DAYBUE [Suspect]
     Active Substance: TROFINETIDE
     Dosage: 5 MILLILITER, BID
     Route: 048
  3. DAYBUE [Suspect]
     Active Substance: TROFINETIDE
     Dosage: 25 MILLILITER, BID
     Route: 048
  4. DAYBUE [Suspect]
     Active Substance: TROFINETIDE
     Dosage: 25 MILLILITER, BID
     Route: 048
  5. DAYBUE [Suspect]
     Active Substance: TROFINETIDE
     Dosage: 25 MILLILITER, BID
     Route: 048
  6. DAYBUE [Suspect]
     Active Substance: TROFINETIDE
     Dosage: 25 MILLILITER, BID
     Route: 048

REACTIONS (17)
  - Adverse drug reaction [Not Recovered/Not Resolved]
  - Hypophagia [Not Recovered/Not Resolved]
  - Retching [Not Recovered/Not Resolved]
  - Product use complaint [Not Recovered/Not Resolved]
  - Product use complaint [Not Recovered/Not Resolved]
  - Product use complaint [Not Recovered/Not Resolved]
  - Product use complaint [Not Recovered/Not Resolved]
  - Product dose omission issue [Recovered/Resolved]
  - Abnormal behaviour [Not Recovered/Not Resolved]
  - Breath holding [Not Recovered/Not Resolved]
  - Underdose [Not Recovered/Not Resolved]
  - Refusal of treatment by patient [Not Recovered/Not Resolved]
  - Pharyngitis streptococcal [Recovered/Resolved]
  - Product dose omission issue [Recovered/Resolved]
  - Influenza [Recovered/Resolved]
  - Diarrhoea [Not Recovered/Not Resolved]
  - Nasopharyngitis [Recovered/Resolved]
